FAERS Safety Report 8901936 (Version 1)
Quarter: 2012Q4

REPORT INFORMATION
  Report Type: Spontaneous
  Country: US (occurrence: None)
  Receive Date: 20121109
  Receipt Date: 20121109
  Transmission Date: 20130627
  Serious: Yes (Other)
  Sender: FDA-Public Use
  Company Number: None

PATIENT
  Age: 66 Year
  Sex: Female
  Weight: 102.06 kg

DRUGS (1)
  1. LEVOFLOXACIN [Suspect]
     Indication: KLEBSIELLA PNEUMONIA
     Route: 048
     Dates: start: 20120921, end: 20120927

REACTIONS (2)
  - Pain in extremity [None]
  - Tremor [None]
